FAERS Safety Report 17744558 (Version 2)
Quarter: 2020Q2

REPORT INFORMATION
  Report Type: Report from Study
  Country: US (occurrence: US)
  Receive Date: 20200504
  Receipt Date: 20200526
  Transmission Date: 20200714
  Serious: Yes (Hospitalization)
  Sender: FDA-Public Use
  Company Number: US-EISAI MEDICAL RESEARCH-EC-2020-068986

PATIENT
  Age: 60 Year
  Sex: Female
  Weight: 98 kg

DRUGS (9)
  1. LENVIMA [Suspect]
     Active Substance: LENVATINIB
     Indication: UTERINE CANCER
     Route: 048
     Dates: start: 20200117, end: 202003
  2. BENAZEPRIL [Concomitant]
     Active Substance: BENAZEPRIL HYDROCHLORIDE
  3. HYDROMORPHONE [Concomitant]
     Active Substance: HYDROMORPHONE
  4. METFORMIN [Concomitant]
     Active Substance: METFORMIN HYDROCHLORIDE
  5. LENVIMA [Suspect]
     Active Substance: LENVATINIB
     Route: 048
     Dates: start: 20200420
  6. COLACE [Concomitant]
     Active Substance: DOCUSATE SODIUM
  7. ENALAPRIL [Concomitant]
     Active Substance: ENALAPRIL
  8. KEYTRUDA [Suspect]
     Active Substance: PEMBROLIZUMAB
     Indication: UTERINE CANCER
     Dosage: UNKNOWN DOSE
     Route: 041
     Dates: start: 202001
  9. FENTANYL TRANSDERMAL SYSTEM [Concomitant]
     Active Substance: FENTANYL

REACTIONS (24)
  - Cholecystitis [Recovered/Resolved]
  - Constipation [Recovered/Resolved]
  - Hypomagnesaemia [Not Recovered/Not Resolved]
  - Blood potassium decreased [Unknown]
  - Abdominal pain upper [Not Recovered/Not Resolved]
  - Anxiety [Not Recovered/Not Resolved]
  - Hot flush [Not Recovered/Not Resolved]
  - Nausea [Not Recovered/Not Resolved]
  - Gastrointestinal infection [Recovered/Resolved]
  - Arthralgia [Unknown]
  - Blood pressure increased [Not Recovered/Not Resolved]
  - Asthenia [Not Recovered/Not Resolved]
  - Dizziness [Not Recovered/Not Resolved]
  - Dehydration [Recovered/Resolved]
  - Dysphonia [Not Recovered/Not Resolved]
  - Fatigue [Not Recovered/Not Resolved]
  - Vomiting [Not Recovered/Not Resolved]
  - Blood calcium decreased [Unknown]
  - Weight decreased [Not Recovered/Not Resolved]
  - Ageusia [Unknown]
  - Pain [Not Recovered/Not Resolved]
  - Lethargy [Recovered/Resolved]
  - Bone pain [Unknown]
  - Taste disorder [Recovering/Resolving]

NARRATIVE: CASE EVENT DATE: 2020
